FAERS Safety Report 17454969 (Version 2)
Quarter: 2021Q2

REPORT INFORMATION
  Report Type: Spontaneous
  Country: US (occurrence: US)
  Receive Date: 20200225
  Receipt Date: 20210409
  Transmission Date: 20210716
  Serious: Yes (Disabling)
  Sender: FDA-Public Use
  Company Number: US-TEVA-2020-US-1190377

PATIENT
  Age: 45 Year
  Sex: Female

DRUGS (5)
  1. ANASTROZOLE. [Concomitant]
     Active Substance: ANASTROZOLE
  2. DOCETAXEL. [Suspect]
     Active Substance: DOCETAXEL
     Indication: BREAST CANCER FEMALE
     Dosage: NUMBER OF CYCLE ? 03, FREQUENCY ? EVERY THREE WEEKS
     Route: 065
     Dates: start: 20141104, end: 20150107
  3. LETROZOLE. [Concomitant]
     Active Substance: LETROZOLE
  4. CYCLOPHOSPHAMIDE. [Concomitant]
     Active Substance: CYCLOPHOSPHAMIDE
     Indication: BREAST CANCER
  5. NACL [Concomitant]
     Active Substance: SODIUM CHLORIDE
     Dates: start: 20141120, end: 20141125

REACTIONS (4)
  - Madarosis [Not Recovered/Not Resolved]
  - Alopecia areata [Not Recovered/Not Resolved]
  - Hair colour changes [Not Recovered/Not Resolved]
  - Hair texture abnormal [Not Recovered/Not Resolved]

NARRATIVE: CASE EVENT DATE: 2014
